FAERS Safety Report 22270048 (Version 1)
Quarter: 2023Q2

REPORT INFORMATION
  Report Type: Spontaneous
  Country: US (occurrence: None)
  Receive Date: 20230428
  Receipt Date: 20230428
  Transmission Date: 20230722
  Serious: No
  Sender: FDA-Public Use
  Company Number: None

PATIENT
  Age: 66 Year
  Sex: Male
  Weight: 117.48 kg

DRUGS (19)
  1. ABIRATERONE ACETATE [Suspect]
     Active Substance: ABIRATERONE ACETATE
     Indication: Prostate cancer
     Dosage: FREQUENCY : DAILY;?
     Route: 048
     Dates: start: 20220914
  2. ALLOPURINOL [Concomitant]
     Active Substance: ALLOPURINOL
  3. AMOXICILLIN [Concomitant]
  4. HERBALS [Concomitant]
     Active Substance: HERBALS
  5. ELIGAR D SQ [Concomitant]
  6. GRAPESEED EXTRACT [Concomitant]
  7. HYDROCHLOROTHIAZIDE [Concomitant]
     Active Substance: HYDROCHLOROTHIAZIDE
  8. LOSARTAN POTASSIUM [Concomitant]
     Active Substance: LOSARTAN POTASSIUM
  9. MULTVITAMIN [Concomitant]
  10. ONDANSETRON HYDROCHLORIDE [Concomitant]
     Active Substance: ONDANSETRON HYDROCHLORIDE
  11. OXYCODONE HCL [Concomitant]
  12. PROTEIN ORAL POWDER [Concomitant]
  13. PYRIDIUM [Concomitant]
  14. TUMERIC COMPLEX [Concomitant]
  15. SPIRONOLACTONE [Concomitant]
  16. SUMATRIPTAN SUCCINATE [Concomitant]
     Active Substance: SUMATRIPTAN SUCCINATE
  17. VERAPAMIL HCL [Concomitant]
     Active Substance: VERAPAMIL HYDROCHLORIDE
  18. VITAMIN C [Concomitant]
  19. VITAMIN D [Concomitant]
     Active Substance: VITAMIN D NOS

REACTIONS (2)
  - SARS-CoV-2 test positive [None]
  - Therapy interrupted [None]

NARRATIVE: CASE EVENT DATE: 20230419
